FAERS Safety Report 9385664 (Version 2)
Quarter: 2013Q3

REPORT INFORMATION
  Report Type: Spontaneous
  Country: JP (occurrence: JP)
  Receive Date: 20130705
  Receipt Date: 20130717
  Transmission Date: 20140515
  Serious: Yes (Hospitalization)
  Sender: FDA-Public Use
  Company Number: JP-GLAXOSMITHKLINE-B0904680A

PATIENT
  Age: 28 Year
  Sex: Male

DRUGS (1)
  1. VALTREX [Suspect]
     Indication: HERPES ZOSTER
     Route: 048
     Dates: start: 20130627, end: 20130628

REACTIONS (4)
  - Polyneuropathy [Unknown]
  - Hypoaesthesia [Unknown]
  - Asthenia [Unknown]
  - Dizziness [Unknown]
